FAERS Safety Report 25244962 (Version 1)
Quarter: 2025Q2

REPORT INFORMATION
  Report Type: Spontaneous
  Country: CN (occurrence: CN)
  Receive Date: 20250428
  Receipt Date: 20250428
  Transmission Date: 20250717
  Serious: Yes (Life-Threatening)
  Sender: COHERUS
  Company Number: CN-SHANGHAI JUNSHI BIOSCIENCES CO., LTD.-CN2025013949

PATIENT

DRUGS (4)
  1. TORIPALIMAB [Suspect]
     Active Substance: TORIPALIMAB
     Indication: Lip and/or oral cavity cancer
     Route: 041
     Dates: start: 20250410
  2. CARBOPLATIN [Suspect]
     Active Substance: CARBOPLATIN
     Indication: Lip and/or oral cavity cancer
     Route: 041
     Dates: start: 20250410
  3. DOCETAXEL [Suspect]
     Active Substance: DOCETAXEL
     Indication: Lip and/or oral cavity cancer
     Route: 041
     Dates: start: 20250410
  4. CETUXIMAB [Suspect]
     Active Substance: CETUXIMAB
     Indication: Lip and/or oral cavity cancer
     Route: 041
     Dates: start: 20250410

REACTIONS (2)
  - Myelosuppression [Recovering/Resolving]
  - Pyrexia [Recovered/Resolved]

NARRATIVE: CASE EVENT DATE: 20250415
